FAERS Safety Report 19810521 (Version 1)
Quarter: 2021Q3

REPORT INFORMATION
  Report Type: Spontaneous
  Country: US (occurrence: US)
  Receive Date: 20210909
  Receipt Date: 20210909
  Transmission Date: 20211014
  Serious: No
  Sender: FDA-Public Use
  Company Number: US-APOTEX-2021AP042463

PATIENT
  Age: 58 Year
  Sex: Male

DRUGS (7)
  1. 6?MERCAPTOPURINE MONOHYDRATE [Concomitant]
     Active Substance: MERCAPTOPURINE
     Indication: COLITIS
     Dosage: 50 MILLIGRAM, QD
     Route: 065
  2. BUTORPHANOL [Suspect]
     Active Substance: BUTORPHANOL
     Dosage: 1 MG/DAY TO 3 MG/DAY (EQUIVALENT TO 1 PUFF TO 3 PUFFS PER DAY)
     Route: 045
     Dates: start: 2020
  3. VEDOLIZUMAB [Concomitant]
     Active Substance: VEDOLIZUMAB
     Indication: COLITIS
     Dosage: 300 MILLIGRAM, EVERY 6 WEEKS
     Route: 065
     Dates: end: 201901
  4. BUTORPHANOL [Suspect]
     Active Substance: BUTORPHANOL
     Indication: CHOLESTATIC PRURITUS
     Dosage: 1 MG/DAY TO 3 MG/DAY (EQUIVALENT TO 1 PUFF TO 3 PUFFS PER DAY)
     Route: 045
     Dates: start: 201802
  5. CHOLESTYRAMINE. [Concomitant]
     Active Substance: CHOLESTYRAMINE
     Indication: CHOLESTATIC PRURITUS
     Dosage: 4 GRAM, BID
     Route: 065
  6. PREDNISONE. [Concomitant]
     Active Substance: PREDNISONE
     Indication: PRODUCT USED FOR UNKNOWN INDICATION
     Dosage: UNK
     Route: 065
  7. SERTRALINE [Concomitant]
     Active Substance: SERTRALINE HYDROCHLORIDE
     Indication: CHOLESTATIC PRURITUS
     Dosage: 100 MILLIGRAM, QD
     Route: 065

REACTIONS (2)
  - Somnolence [Unknown]
  - Off label use [Unknown]
